FAERS Safety Report 11815778 (Version 1)
Quarter: 2015Q4

REPORT INFORMATION
  Report Type: Spontaneous
  Country: US (occurrence: US)
  Receive Date: 20151209
  Receipt Date: 20151209
  Transmission Date: 20160305
  Serious: No
  Sender: FDA-Public Use
  Company Number: US-TAKEDA-2015TUS017467

PATIENT
  Age: 39 Year
  Sex: Female

DRUGS (1)
  1. BRINTELLIX [Suspect]
     Active Substance: VORTIOXETINE HYDROBROMIDE
     Indication: MAJOR DEPRESSION
     Dosage: 10 MG, QD
     Route: 048
     Dates: start: 201511, end: 201511

REACTIONS (2)
  - Pharyngeal oedema [Recovered/Resolved]
  - Mouth swelling [Recovered/Resolved]

NARRATIVE: CASE EVENT DATE: 201511
